FAERS Safety Report 9193220 (Version 2)
Quarter: 2013Q2

REPORT INFORMATION
  Report Type: Spontaneous
  Country: US (occurrence: US)
  Receive Date: 20130327
  Receipt Date: 20130529
  Transmission Date: 20140414
  Serious: No
  Sender: FDA-Public Use
  Company Number: US-009507513-1303USA012846

PATIENT
  Age: 80 Year
  Sex: Male

DRUGS (1)
  1. ZIOPTAN [Suspect]
     Indication: INTRAOCULAR PRESSURE INCREASED
     Dosage: 1 GTT ON QHS
     Route: 047
     Dates: start: 2013

REACTIONS (2)
  - Intraocular pressure increased [Not Recovered/Not Resolved]
  - Incorrect storage of drug [Unknown]
